FAERS Safety Report 13342603 (Version 1)
Quarter: 2017Q1

REPORT INFORMATION
  Report Type: Spontaneous
  Country: US (occurrence: US)
  Receive Date: 20170316
  Receipt Date: 20170316
  Transmission Date: 20170428
  Serious: Yes (Other)
  Sender: FDA-Public Use
  Company Number: US-PFIZER INC-2017107602

PATIENT
  Sex: Female

DRUGS (1)
  1. XELJANZ [Suspect]
     Active Substance: TOFACITINIB CITRATE
     Dosage: 5 MG, 2X/DAY

REACTIONS (7)
  - Musculoskeletal stiffness [Unknown]
  - Pain [Unknown]
  - Sjogren^s syndrome [Unknown]
  - Stomatitis [Unknown]
  - Joint swelling [Unknown]
  - Arthralgia [Unknown]
  - Joint stiffness [Unknown]
